FAERS Safety Report 23802110 (Version 1)
Quarter: 2024Q2

REPORT INFORMATION
  Report Type: Spontaneous
  Country: CN (occurrence: None)
  Receive Date: 20240501
  Receipt Date: 20240501
  Transmission Date: 20240716
  Serious: Yes (Other)
  Sender: FDA-Public Use
  Company Number: CN-ROCHE-3551245

PATIENT
  Age: 50 Year
  Sex: Female
  Weight: 49 kg

DRUGS (54)
  1. TRASTUZUMAB [Suspect]
     Active Substance: TRASTUZUMAB
     Indication: Metastatic gastric cancer
     Route: 041
     Dates: start: 20240130
  2. TRASTUZUMAB [Suspect]
     Active Substance: TRASTUZUMAB
     Indication: Metastases to liver
  3. TRASTUZUMAB [Suspect]
     Active Substance: TRASTUZUMAB
     Indication: Adenocarcinoma gastric
  4. TRASTUZUMAB [Suspect]
     Active Substance: TRASTUZUMAB
     Indication: Metastases to biliary tract
  5. TRASTUZUMAB [Suspect]
     Active Substance: TRASTUZUMAB
     Indication: Metastases to abdominal cavity
  6. TRASTUZUMAB [Suspect]
     Active Substance: TRASTUZUMAB
     Indication: Metastases to lymph nodes
  7. TRASTUZUMAB [Suspect]
     Active Substance: TRASTUZUMAB
     Indication: Metastases to lymph nodes
  8. TRASTUZUMAB [Suspect]
     Active Substance: TRASTUZUMAB
     Indication: Haemangioma of liver
  9. TRASTUZUMAB [Suspect]
     Active Substance: TRASTUZUMAB
     Indication: Spleen disorder
  10. TRASTUZUMAB [Suspect]
     Active Substance: TRASTUZUMAB
     Indication: Renal cyst
  11. TRASTUZUMAB [Suspect]
     Active Substance: TRASTUZUMAB
     Indication: Chronic gastritis
  12. TRASTUZUMAB [Suspect]
     Active Substance: TRASTUZUMAB
     Indication: Gastric polyps
  13. TRASTUZUMAB [Suspect]
     Active Substance: TRASTUZUMAB
     Indication: Myelosuppression
  14. TRASTUZUMAB [Suspect]
     Active Substance: TRASTUZUMAB
     Indication: Anaemia
  15. SINTILIMAB [Suspect]
     Active Substance: SINTILIMAB
     Indication: Metastatic gastric cancer
     Route: 041
     Dates: start: 20240130
  16. SINTILIMAB [Suspect]
     Active Substance: SINTILIMAB
     Indication: Metastases to liver
  17. SINTILIMAB [Suspect]
     Active Substance: SINTILIMAB
     Indication: Adenocarcinoma gastric
  18. SINTILIMAB [Suspect]
     Active Substance: SINTILIMAB
     Indication: Metastases to abdominal cavity
  19. SINTILIMAB [Suspect]
     Active Substance: SINTILIMAB
     Indication: Metastases to lymph nodes
  20. SINTILIMAB [Suspect]
     Active Substance: SINTILIMAB
     Indication: Metastases to lymph nodes
  21. SINTILIMAB [Suspect]
     Active Substance: SINTILIMAB
     Indication: Haemangioma of liver
  22. SINTILIMAB [Suspect]
     Active Substance: SINTILIMAB
     Indication: Spleen disorder
  23. SINTILIMAB [Suspect]
     Active Substance: SINTILIMAB
     Indication: Renal cyst
  24. SINTILIMAB [Suspect]
     Active Substance: SINTILIMAB
     Indication: Chronic gastritis
  25. SINTILIMAB [Suspect]
     Active Substance: SINTILIMAB
     Indication: Gastric polyps
  26. SINTILIMAB [Suspect]
     Active Substance: SINTILIMAB
     Indication: Myelosuppression
  27. SINTILIMAB [Suspect]
     Active Substance: SINTILIMAB
     Indication: Anaemia
  28. FLUOROURACIL [Suspect]
     Active Substance: FLUOROURACIL
     Indication: Metastatic gastric cancer
     Dosage: FOR 96 H
     Route: 042
     Dates: start: 20240130
  29. FLUOROURACIL [Suspect]
     Active Substance: FLUOROURACIL
     Indication: Metastases to liver
  30. FLUOROURACIL [Suspect]
     Active Substance: FLUOROURACIL
     Indication: Adenocarcinoma gastric
  31. FLUOROURACIL [Suspect]
     Active Substance: FLUOROURACIL
     Indication: Metastases to biliary tract
  32. FLUOROURACIL [Suspect]
     Active Substance: FLUOROURACIL
     Indication: Metastases to abdominal cavity
  33. FLUOROURACIL [Suspect]
     Active Substance: FLUOROURACIL
     Indication: Metastases to lymph nodes
  34. FLUOROURACIL [Suspect]
     Active Substance: FLUOROURACIL
     Indication: Haemangioma of liver
  35. FLUOROURACIL [Suspect]
     Active Substance: FLUOROURACIL
     Indication: Spleen disorder
  36. FLUOROURACIL [Suspect]
     Active Substance: FLUOROURACIL
     Indication: Renal cyst
  37. FLUOROURACIL [Suspect]
     Active Substance: FLUOROURACIL
     Indication: Chronic gastritis
  38. FLUOROURACIL [Suspect]
     Active Substance: FLUOROURACIL
     Indication: Gastric polyps
  39. FLUOROURACIL [Suspect]
     Active Substance: FLUOROURACIL
     Indication: Myelosuppression
  40. FLUOROURACIL [Suspect]
     Active Substance: FLUOROURACIL
     Indication: Anaemia
  41. CISPLATIN [Suspect]
     Active Substance: CISPLATIN
     Indication: Metastatic gastric cancer
     Dosage: D2-4
     Route: 042
     Dates: start: 20240130
  42. CISPLATIN [Suspect]
     Active Substance: CISPLATIN
     Indication: Metastases to liver
  43. CISPLATIN [Suspect]
     Active Substance: CISPLATIN
     Indication: Adenocarcinoma gastric
  44. CISPLATIN [Suspect]
     Active Substance: CISPLATIN
     Indication: Metastases to biliary tract
  45. CISPLATIN [Suspect]
     Active Substance: CISPLATIN
     Indication: Metastases to abdominal cavity
  46. CISPLATIN [Suspect]
     Active Substance: CISPLATIN
     Indication: Metastases to lymph nodes
  47. CISPLATIN [Suspect]
     Active Substance: CISPLATIN
     Indication: Metastases to lymph nodes
  48. CISPLATIN [Suspect]
     Active Substance: CISPLATIN
     Indication: Haemangioma of liver
  49. CISPLATIN [Suspect]
     Active Substance: CISPLATIN
     Indication: Spleen disorder
  50. CISPLATIN [Suspect]
     Active Substance: CISPLATIN
     Indication: Renal cyst
  51. CISPLATIN [Suspect]
     Active Substance: CISPLATIN
     Indication: Chronic gastritis
  52. CISPLATIN [Suspect]
     Active Substance: CISPLATIN
     Indication: Gastric polyps
  53. CISPLATIN [Suspect]
     Active Substance: CISPLATIN
     Indication: Myelosuppression
  54. CISPLATIN [Suspect]
     Active Substance: CISPLATIN
     Indication: Anaemia

REACTIONS (1)
  - Myelosuppression [Unknown]

NARRATIVE: CASE EVENT DATE: 20240203
